FAERS Safety Report 6109494-7 (Version None)
Quarter: 2009Q1

REPORT INFORMATION
  Report Type: 
  Country: None (occurrence: None)
  Receive Date: 20090306
  Receipt Date: 20090306
  Transmission Date: 20090719
  Serious: Yes (Other)
  Sender: FDA-Public Use
  Company Number: None

PATIENT
  Age: 10 Year
  Sex: Male
  Weight: 33.1126 kg

DRUGS (1)
  1. SINGULAIR [Suspect]
     Indication: ASTHMA
     Dosage: 5MG CHEW TAB ONCE DAILY PO
     Route: 048
     Dates: start: 20020612, end: 20090304

REACTIONS (6)
  - AGGRESSION [None]
  - ANGER [None]
  - CRYING [None]
  - IRRITABILITY [None]
  - MOOD ALTERED [None]
  - SELF-INJURIOUS IDEATION [None]
